FAERS Safety Report 4348130-7 (Version None)
Quarter: 2004Q1

REPORT INFORMATION
  Report Type: 
  Country: None (occurrence: None)
  Receive Date: 20040325
  Receipt Date: 20040213
  Transmission Date: 20041129
  Serious: No
  Sender: FDA-Public Use
  Company Number: USA040259282

PATIENT
  Age: 61 Year
  Sex: Male
  Weight: 91 kg

DRUGS (11)
  1. FORTEO [Suspect]
     Dosage: 20 UG/1 DAY
     Dates: start: 20031201
  2. DARVOCET-N 100 [Concomitant]
  3. DITROPAN [Concomitant]
  4. TRAZODONE HCL [Concomitant]
  5. DURAGESIC [Concomitant]
  6. PHENELZINE [Concomitant]
  7. NEXIUM [Concomitant]
  8. FLONASE [Concomitant]
  9. PAXIL [Concomitant]
  10. FLOMAX [Concomitant]
  11. ZIAC [Concomitant]

REACTIONS (1)
  - BLADDER SPASM [None]
